FAERS Safety Report 5713693-3 (Version None)
Quarter: 2008Q2

REPORT INFORMATION
  Report Type: 
  Country: None (occurrence: None)
  Receive Date: 20080418
  Receipt Date: 20080407
  Transmission Date: 20081010
  Serious: Yes (Hospitalization)
  Sender: FDA-Public Use
  Company Number: 02100-JPN-06-0134

PATIENT
  Age: 54 Year
  Sex: Male

DRUGS (8)
  1. PLETAL [Suspect]
     Indication: CEREBRAL INFARCTION
     Dosage: 100 MG, BID ORAL
     Route: 048
     Dates: start: 20041203, end: 20071205
  2. BAYASPIRIN   (ACETYLSALICYLIC ACID) TABLET [Suspect]
     Dosage: 100 MG, DAILY DOSE ORAL
     Route: 048
     Dates: start: 20050507, end: 20071205
  3. ADALAT [Concomitant]
  4. BLOPRESS  (CANDESARTAN CILEXETIL) TABLET [Concomitant]
  5. FAMOTIDINE [Concomitant]
  6. ACTOS [Concomitant]
  7. GLUFAST (MITIGLINIDE CALCIUM HYDRATE) TABLET [Concomitant]
  8. METHYCOBAL    (MECOBALAMIN) [Concomitant]

REACTIONS (3)
  - ANAEMIA [None]
  - DIVERTICULUM INTESTINAL HAEMORRHAGIC [None]
  - VERTEBRAL ARTERY STENOSIS [None]
